FAERS Safety Report 6189917-8 (Version None)
Quarter: 2009Q2

REPORT INFORMATION
  Report Type: 
  Country: None (occurrence: None)
  Receive Date: 20090514
  Receipt Date: 20070423
  Transmission Date: 20091009
  Serious: Yes (Hospitalization, Other)
  Sender: FDA-Public Use
  Company Number: US-ASTRAZENECA-2006UW23623

PATIENT
  Age: 39 Year
  Sex: Female
  Weight: 49 kg

DRUGS (21)
  1. SEROQUEL [Suspect]
     Indication: BIPOLAR DISORDER
     Route: 048
  2. SEROQUEL [Suspect]
     Indication: SLEEP DISORDER
     Route: 048
  3. SEROQUEL [Suspect]
     Indication: ANXIETY
     Route: 048
  4. SEROQUEL [Suspect]
     Dosage: 25MG-1200MG
     Route: 048
     Dates: start: 20051101
  5. SEROQUEL [Suspect]
     Dosage: 25MG-1200MG
     Route: 048
     Dates: start: 20051101
  6. SEROQUEL [Suspect]
     Dosage: 25MG-1200MG
     Route: 048
     Dates: start: 20051101
  7. ABILIFY [Concomitant]
     Route: 065
  8. RISPERDAL [Concomitant]
     Route: 065
  9. THORAZINE [Concomitant]
     Route: 065
  10. ZYPREXA [Concomitant]
     Route: 065
  11. MELLARIL [Concomitant]
     Route: 065
  12. LITHIUM CARBONATE [Concomitant]
     Route: 048
  13. DEPAKOTE [Concomitant]
     Dosage: 1500MG-2000MG
     Route: 048
  14. KLONOPIN [Concomitant]
     Dosage: 1MG-3MG
     Route: 048
  15. HYDROCODONE BITARTRATE [Concomitant]
     Route: 048
  16. DESYREL [Concomitant]
     Route: 048
  17. TRILEPTAL [Concomitant]
     Route: 048
  18. CHLORPROMAZINE [Concomitant]
     Route: 048
  19. THIORIDAZINE HCL [Concomitant]
     Route: 048
  20. BENADRYL [Concomitant]
     Dosage: 50MG 2 CAPSULES AT NIGHT
     Route: 048
  21. PREDNISOLONE [Concomitant]
     Route: 048

REACTIONS (20)
  - ABDOMINAL PAIN [None]
  - BRONCHITIS [None]
  - CONJUNCTIVITIS INFECTIVE [None]
  - DEPRESSION [None]
  - DIABETES MELLITUS [None]
  - DIZZINESS [None]
  - DYSPHAGIA [None]
  - DYSURIA [None]
  - EAR PAIN [None]
  - EXTRAPYRAMIDAL DISORDER [None]
  - HAEMATURIA [None]
  - HYPERTENSION [None]
  - IMPULSIVE BEHAVIOUR [None]
  - IRRITABILITY [None]
  - OVERDOSE [None]
  - PHARYNGEAL NEOPLASM [None]
  - PHARYNGITIS [None]
  - SUICIDAL BEHAVIOUR [None]
  - TARDIVE DYSKINESIA [None]
  - VOMITING [None]
